FAERS Safety Report 7064659-5 (Version None)
Quarter: 2010Q4

REPORT INFORMATION
  Report Type: 
  Country: None (occurrence: None)
  Receive Date: 20101025
  Receipt Date: 20101025
  Transmission Date: 20110411
  Serious: Yes (Other)
  Sender: FDA-Public Use
  Company Number: None

PATIENT
  Age: 39 Year
  Sex: Male
  Weight: 113.3993 kg

DRUGS (1)
  1. REBIF [Suspect]
     Indication: MULTIPLE SCLEROSIS
     Dosage: 44 MCG 3 TIMES/WEEK SC
     Route: 058
     Dates: start: 20090805

REACTIONS (3)
  - CHEMICAL INJURY [None]
  - SKIN DISORDER [None]
  - WRONG TECHNIQUE IN DRUG USAGE PROCESS [None]
